FAERS Safety Report 17288693 (Version 1)
Quarter: 2020Q1

REPORT INFORMATION
  Report Type: Spontaneous
  Country: US (occurrence: US)
  Receive Date: 20200120
  Receipt Date: 20200120
  Transmission Date: 20200409
  Serious: No
  Sender: FDA-Public Use
  Company Number: US-GW PHARMA-202001USGW00153

PATIENT

DRUGS (2)
  1. EPIDIOLEX [Suspect]
     Active Substance: CANNABIDIOL
     Indication: LENNOX-GASTAUT SYNDROME
     Dosage: 120 MILLIGRAM, BID
     Route: 048
     Dates: start: 20191225
  2. EPIDIOLEX [Suspect]
     Active Substance: CANNABIDIOL
     Dosage: 240 MILLIGRAM, BID (DOUBLED THE DOSE)
     Route: 048

REACTIONS (1)
  - Seizure [Not Recovered/Not Resolved]
